FAERS Safety Report 7002083-1 (Version None)
Quarter: 2010Q3

REPORT INFORMATION
  Report Type: 
  Country: None (occurrence: None)
  Receive Date: 20100920
  Receipt Date: 20070615
  Transmission Date: 20110219
  Serious: Yes (Hospitalization)
  Sender: FDA-Public Use
  Company Number: US-ASTRAZENECA-2006UW22438

PATIENT
  Age: 14554 Day
  Sex: Male
  Weight: 147.4 kg

DRUGS (18)
  1. SEROQUEL [Suspect]
     Indication: DEPRESSION
     Dosage: 25MG-600MG
     Route: 048
     Dates: start: 20041029
  2. SEROQUEL [Suspect]
     Route: 048
  3. TRAZODONE HCL [Concomitant]
  4. ZOLOFT [Concomitant]
     Dosage: 100MG-150MG
     Dates: start: 20041105
  5. ZOLOFT [Concomitant]
  6. LISINOPRIL [Concomitant]
     Dosage: 10MG-20MG
     Dates: start: 20041105
  7. HYDROCHLOROTHIAZIDE [Concomitant]
     Dates: start: 20041105
  8. VASOTEC [Concomitant]
     Dates: start: 20041105
  9. ACCUPRIL [Concomitant]
     Dates: start: 20041205
  10. ASPIRIN [Concomitant]
     Dates: start: 20031207
  11. METFORMIN [Concomitant]
     Dosage: 1000MG-1700MG
     Dates: start: 20041205
  12. CELEBREX [Concomitant]
     Dates: start: 20041205
  13. GLIPIZIDE [Concomitant]
     Dates: start: 20050507
  14. VISTARIL [Concomitant]
     Indication: ANXIETY
     Dates: start: 20050109
  15. TRAZODONE HCL [Concomitant]
     Indication: ANXIETY
     Dosage: 50MG AS REQUIRED
     Dates: start: 20050109
  16. LORAZEPAM [Concomitant]
     Dosage: 2 MG TABLET DISPENSE
     Dates: start: 20050406
  17. SIMVASTATIN [Concomitant]
     Dosage: 10 MG TABLET DISPENSE
     Dates: start: 20050406
  18. PREDNISONE [Concomitant]
     Dosage: 20MG TABLET DISPENSE
     Dates: start: 20050406

REACTIONS (4)
  - DIABETES MELLITUS [None]
  - METABOLIC SYNDROME [None]
  - OVERDOSE [None]
  - TYPE 2 DIABETES MELLITUS [None]
